FAERS Safety Report 11838003 (Version 1)
Quarter: 2015Q4

REPORT INFORMATION
  Report Type: Spontaneous
  Country: US (occurrence: US)
  Receive Date: 20151215
  Receipt Date: 20151215
  Transmission Date: 20160305
  Serious: Yes (Other)
  Sender: FDA-Public Use
  Company Number: US-PURDUE-USA-2015-0127991

PATIENT
  Sex: Male
  Weight: 155 kg

DRUGS (1)
  1. OXYCODONE/ ACETAMINOPHEN TABLETS [Suspect]
     Active Substance: ACETAMINOPHEN\OXYCODONE HYDROCHLORIDE
     Indication: ANALGESIC THERAPY
     Dosage: HALF OF 5/325 MG, BID
     Route: 048
     Dates: start: 201509, end: 201510

REACTIONS (2)
  - Inadequate analgesia [Unknown]
  - Spinal cord compression [Unknown]
